FAERS Safety Report 6137651-2 (Version None)
Quarter: 2009Q1

REPORT INFORMATION
  Report Type: 
  Country: None (occurrence: None)
  Receive Date: 20090327
  Receipt Date: 20090327
  Transmission Date: 20090719
  Serious: Yes (Disabling)
  Sender: FDA-Public Use
  Company Number: None

PATIENT
  Age: 65 Year
  Sex: Female
  Weight: 39.0547 kg

DRUGS (29)
  1. VENOFER [Suspect]
     Indication: IRON DEFICIENCY ANAEMIA
     Dosage: 200 MG DAILY X 3 IV DRIP
     Route: 041
     Dates: start: 20090323, end: 20090325
  2. PROPOFOL [Suspect]
     Indication: ANAESTHESIA
     Dosage: UNSURE UNSURE IV DRIP
     Route: 041
     Dates: start: 20090325, end: 20090325
  3. MORPHINE [Concomitant]
  4. PROPOXYPHENE HCL CAP [Concomitant]
  5. HEP FLUASH [Concomitant]
  6. ROCEPHIN [Concomitant]
  7. PANTOPRAZOLE SODIUM [Concomitant]
  8. ALBUTEROL [Concomitant]
  9. CALCIUM CARONATE [Concomitant]
  10. DOXYCYCLINE [Concomitant]
  11. ZOLPIDEM [Concomitant]
  12. ASPIRIN [Concomitant]
  13. FLOIC ACID [Concomitant]
  14. M.V.I. [Concomitant]
  15. PREDNISONE [Concomitant]
  16. DILTIAZEM [Concomitant]
  17. EPTIFIBATIDE [Concomitant]
  18. DIGOXIN IV [Concomitant]
  19. VENOFER IV [Concomitant]
  20. LEVOTHYROXINE SODIUM [Concomitant]
  21. EPOETIN ALFA [Concomitant]
  22. AMIODARONE HCL [Concomitant]
  23. ALENDRONATE SODIUM QW [Concomitant]
  24. BUPIVACAINE [Concomitant]
  25. FENTANYL-25 [Concomitant]
  26. CLINDAMYCIN HCL [Concomitant]
  27. NEOSTIGMINE [Concomitant]
  28. PROPOFOL [Concomitant]
  29. SUCCINYLCHOLINE [Concomitant]

REACTIONS (2)
  - DRUG ADMINISTRATION ERROR [None]
  - DYSPNOEA [None]
